FAERS Safety Report 15014086 (Version 1)
Quarter: 2018Q2

REPORT INFORMATION
  Report Type: Not Available
  Country: US (occurrence: US)
  Receive Date: 20180615
  Receipt Date: 20180615
  Transmission Date: 20180711
  Serious: No
  Sender: FDA-Public Use
  Company Number: US-NEUROCRINE BIOSCIENCES INC.-2018NBI01687

PATIENT
  Sex: Male

DRUGS (3)
  1. INGREZZA [Suspect]
     Active Substance: VALBENAZINE
     Route: 048
     Dates: start: 20180221
  2. INGREZZA [Suspect]
     Active Substance: VALBENAZINE
     Indication: PRODUCT USED FOR UNKNOWN INDICATION
     Route: 048
     Dates: start: 20180214, end: 20180220
  3. BOTOX [Concomitant]
     Active Substance: ONABOTULINUMTOXINA
     Indication: DYSKINESIA

REACTIONS (4)
  - Tic [Unknown]
  - Tremor [Unknown]
  - Muscle spasms [Unknown]
  - Drug effect decreased [None]

NARRATIVE: CASE EVENT DATE: 2018
